FAERS Safety Report 5957599-3 (Version None)
Quarter: 2008Q4

REPORT INFORMATION
  Report Type: 
  Country: None (occurrence: None)
  Receive Date: 20081117
  Receipt Date: 20081117
  Transmission Date: 20090506
  Serious: Yes (Death, Other)
  Sender: FDA-Public Use
  Company Number: None

PATIENT
  Age: 67 Year
  Sex: Male
  Weight: 64 kg

DRUGS (7)
  1. GEMCITABINE [Suspect]
     Indication: BLADDER CANCER
     Dosage: 800 MG Q3W IV
     Route: 042
     Dates: start: 20081024, end: 20081024
  2. CISPLATIN [Suspect]
     Indication: BLADDER CANCER
     Dosage: 70 MG/M**2 Q3W IV
     Route: 042
     Dates: start: 20081024, end: 20081024
  3. ATENOLOL [Concomitant]
  4. TRAMADOL HCL [Concomitant]
  5. DEXAMETHASONE 0.5MG TAB [Concomitant]
  6. RANITIDINE [Concomitant]
  7. EMESET [Concomitant]

REACTIONS (2)
  - CHEST PAIN [None]
  - SUDDEN DEATH [None]
